FAERS Safety Report 21025079 (Version 1)
Quarter: 2022Q2

REPORT INFORMATION
  Report Type: Spontaneous
  Country: US (occurrence: US)
  Receive Date: 20220629
  Receipt Date: 20220629
  Transmission Date: 20220721
  Serious: Yes (Death, Other)
  Sender: FDA-Public Use
  Company Number: US-BRISTOL-MYERS SQUIBB COMPANY-2022-063805

PATIENT
  Age: 59 Year
  Sex: Female

DRUGS (4)
  1. OPDIVO [Suspect]
     Active Substance: NIVOLUMAB
     Indication: Bladder neoplasm
     Dosage: DOSE : 480MG|289MG;     FREQ : EVERY 4 WEEKS|EVERY 3 WEEKS
     Route: 042
  2. YERVOY [Suspect]
     Active Substance: IPILIMUMAB
     Indication: Bladder neoplasm
     Dosage: DOSE : 480MG|289MG;     FREQ : EVERY 4 WEEKS|EVERY 3 WEEKS
     Route: 042
  3. DITROPAN [Concomitant]
     Active Substance: OXYBUTYNIN CHLORIDE
     Indication: Product used for unknown indication
     Route: 065
  4. BISOPROLOL [Concomitant]
     Active Substance: BISOPROLOL
     Indication: Product used for unknown indication
     Route: 065

REACTIONS (2)
  - Death [Fatal]
  - Intentional product use issue [Unknown]

NARRATIVE: CASE EVENT DATE: 20220605
